FAERS Safety Report 6583470-2 (Version None)
Quarter: 2010Q1

REPORT INFORMATION
  Report Type: 
  Country: None (occurrence: None)
  Receive Date: 20100216
  Receipt Date: 20100203
  Transmission Date: 20100710
  Serious: Yes (Other)
  Sender: FDA-Public Use
  Company Number: JP-SANOFI-AVENTIS-2009SA008288

PATIENT

DRUGS (3)
  1. SOLOSTAR [Suspect]
  2. SOLOSTAR [Suspect]
  3. LANTUS [Suspect]

REACTIONS (1)
  - DEVICE MALFUNCTION [None]
